FAERS Safety Report 6747533-0 (Version None)
Quarter: 2010Q2

REPORT INFORMATION
  Report Type: 
  Country: None (occurrence: None)
  Receive Date: 20100528
  Receipt Date: 20100521
  Transmission Date: 20101027
  Serious: Yes (Life-Threatening)
  Sender: FDA-Public Use
  Company Number: JP-JNJFOC-20100510218

PATIENT
  Age: 58 Year
  Sex: Female

DRUGS (3)
  1. CRAVIT [Suspect]
     Indication: PNEUMONIA
     Route: 048
  2. AVELOX [Suspect]
     Indication: PYREXIA
     Route: 065
  3. KLARICID [Suspect]
     Indication: DRUG USE FOR UNKNOWN INDICATION
     Route: 065

REACTIONS (1)
  - INTERSTITIAL LUNG DISEASE [None]
